FAERS Safety Report 7968168-8 (Version None)
Quarter: 2011Q4

REPORT INFORMATION
  Report Type: 
  Country: None (occurrence: None)
  Receive Date: 20111209
  Receipt Date: 20111129
  Transmission Date: 20120403
  Serious: Yes (Hospitalization, Other)
  Sender: FDA-Public Use
  Company Number: PHHY2011JP90871

PATIENT
  Sex: Female
  Weight: 63 kg

DRUGS (2)
  1. VALSARTAN [Suspect]
     Indication: HYPERTENSION
     Dosage: 80 MG,
     Dates: start: 20071114, end: 20091125
  2. CALSLOT [Concomitant]
     Indication: HYPERTENSION
     Dosage: 10 MG,
     Route: 048
     Dates: start: 20070111, end: 20091125

REACTIONS (6)
  - ARRHYTHMIA [None]
  - BLOOD PRESSURE DIASTOLIC DECREASED [None]
  - FALL [None]
  - PLEURAL EFFUSION [None]
  - CARDIAC FAILURE [None]
  - GAIT DISTURBANCE [None]
